FAERS Safety Report 6677168-X (Version None)
Quarter: 2010Q2

REPORT INFORMATION
  Report Type: 
  Country: None (occurrence: None)
  Receive Date: 20100412
  Receipt Date: 20100325
  Transmission Date: 20101027
  Serious: Yes (Hospitalization)
  Sender: FDA-Public Use
  Company Number: JP-MERCK-1003USA02775

PATIENT
  Age: 78 Year
  Sex: Female

DRUGS (7)
  1. JANUVIA [Suspect]
     Indication: DIABETES MELLITUS
     Route: 048
     Dates: start: 20091221, end: 20100315
  2. PROTHIADEN [Concomitant]
     Route: 048
  3. LIVALO [Concomitant]
     Route: 048
  4. SILECE [Concomitant]
     Route: 065
  5. EUGLUCON [Concomitant]
     Indication: DIABETES MELLITUS
     Route: 048
     Dates: start: 20100301
  6. EUGLUCON [Concomitant]
     Route: 048
     Dates: end: 20091220
  7. LASIX [Concomitant]
     Route: 065
     Dates: start: 20100301

REACTIONS (1)
  - RENAL FAILURE ACUTE [None]
